FAERS Safety Report 7622942-6 (Version None)
Quarter: 2011Q3

REPORT INFORMATION
  Report Type: 
  Country: None (occurrence: None)
  Receive Date: 20110720
  Receipt Date: 20110707
  Transmission Date: 20111222
  Serious: Yes (Other)
  Sender: FDA-Public Use
  Company Number: JP-UCBSA-036123

PATIENT
  Sex: Male

DRUGS (5)
  1. ALEVIATIN [Concomitant]
     Route: 048
  2. KEPPRA [Suspect]
     Indication: EPILEPSY
     Route: 048
     Dates: start: 20110611, end: 20110622
  3. MAGNESIUM OXIDE [Concomitant]
     Route: 048
  4. VALPROATE SODIUM [Concomitant]
     Route: 048
  5. LAMICTAL [Concomitant]
     Route: 048
     Dates: start: 20091207

REACTIONS (2)
  - TIC [None]
  - CHOREOATHETOSIS [None]
